FAERS Safety Report 5008644-3 (Version None)
Quarter: 2006Q2

REPORT INFORMATION
  Report Type: 
  Country: None (occurrence: None)
  Receive Date: 20060523
  Receipt Date: 20060504
  Transmission Date: 20061013
  Serious: Yes (Disabling)
  Sender: FDA-Public Use
  Company Number: US-GLAXOSMITHKLINE-A0604400A

PATIENT
  Age: 57 Year
  Sex: Male
  Weight: 98.6 kg

DRUGS (5)
  1. AVODART [Suspect]
     Indication: PROSTATE CANCER
     Dosage: .5MG PER DAY
     Route: 048
     Dates: start: 20060427
  2. CIPRO [Concomitant]
     Route: 048
     Dates: start: 20060427
  3. FLOMAX [Concomitant]
     Route: 048
     Dates: start: 20060427
  4. GLUCOVANCE [Concomitant]
     Route: 048
     Dates: start: 20030427
  5. DARVOCET [Concomitant]
     Route: 048
     Dates: start: 20060427

REACTIONS (3)
  - DRUG INEFFECTIVE [None]
  - OVERDOSE [None]
  - PAIN [None]
